FAERS Safety Report 7415953-7 (Version None)
Quarter: 2011Q2

REPORT INFORMATION
  Report Type: 
  Country: None (occurrence: None)
  Receive Date: 20110414
  Receipt Date: 20110411
  Transmission Date: 20111010
  Serious: Yes (Death, Hospitalization)
  Sender: FDA-Public Use
  Company Number: PHHY2011JP29648

PATIENT
  Age: 80 Year
  Sex: Female

DRUGS (3)
  1. AMPICILLIN AND SULBACTAM [Concomitant]
     Indication: PNEUMONIA
     Dosage: 6 G, QD
  2. CEFOTAXIME [Concomitant]
     Indication: PNEUMONIA
     Dosage: 7 G, QD
  3. CEFTRIAXONE [Suspect]
     Indication: PNEUMONIA
     Dosage: 1 G, QD

REACTIONS (15)
  - LIVER DISORDER [None]
  - LYMPHOCYTIC INFILTRATION [None]
  - COAGULOPATHY [None]
  - HEPATIC NECROSIS [None]
  - BLOOD PRESSURE DECREASED [None]
  - HEPATITIS [None]
  - HEPATITIS FULMINANT [None]
  - RESPIRATORY DISORDER [None]
  - GENERALISED OEDEMA [None]
  - PULMONARY CONGESTION [None]
  - DRUG HYPERSENSITIVITY [None]
  - DEPRESSED LEVEL OF CONSCIOUSNESS [None]
  - PYREXIA [None]
  - STRIDOR [None]
  - HEPATIC CONGESTION [None]
